FAERS Safety Report 5363746-7 (Version None)
Quarter: 2007Q2

REPORT INFORMATION
  Report Type: 
  Country: None (occurrence: None)
  Receive Date: 20070618
  Receipt Date: 20070618
  Transmission Date: 20071010
  Serious: Yes (Congenital Anomaly)
  Sender: FDA-Public Use
  Company Number: None

PATIENT
  Sex: Male
  Weight: 2.7216 kg

DRUGS (1)
  1. TERBUTALINE SULFATE [Suspect]
     Indication: PREMATURE LABOUR
     Dosage: 8 TIMES OVER 4 MONTHS IV
     Route: 042
     Dates: start: 20060201, end: 20060504

REACTIONS (2)
  - CEREBRAL DISORDER [None]
  - DRUG EXPOSURE DURING PREGNANCY [None]
